FAERS Safety Report 17558316 (Version 2)
Quarter: 2024Q4

REPORT INFORMATION
  Report Type: Report from Study
  Country: BR (occurrence: BR)
  Receive Date: 20200318
  Receipt Date: 20241227
  Transmission Date: 20250114
  Serious: No
  Sender: TAKEDA
  Company Number: BR-TAKEDA-2020TUS014498

PATIENT
  Age: 38 Year
  Sex: Female

DRUGS (1)
  1. VEDOLIZUMAB [Suspect]
     Active Substance: VEDOLIZUMAB
     Indication: Crohn^s disease
     Dosage: UNK
     Dates: start: 20190620, end: 20200122

REACTIONS (2)
  - No adverse event [Unknown]
  - Inappropriate schedule of product administration [Recovered/Resolved]

NARRATIVE: CASE EVENT DATE: 20240710
